FAERS Safety Report 8659222 (Version 2)
Quarter: 2012Q4

REPORT INFORMATION
  Report Type: Report from Study
  Country: FR (occurrence: FR)
  Receive Date: 20120711
  Receipt Date: 20120928
  Transmission Date: 20130627
  Serious: Yes (Hospitalization)
  Sender: FDA-Public Use
  Company Number: PHHO2012FR010167

PATIENT
  Age: 38 Year
  Sex: Male
  Weight: 80 kg

DRUGS (5)
  1. MYCOPHENOLIC ACID [Suspect]
     Indication: RENAL TRANSPLANT
     Dosage: 1440 mg, day
     Route: 048
     Dates: start: 20100820, end: 20101109
  2. MYCOPHENOLIC ACID [Suspect]
     Dosage: 1440 mg, day
     Route: 048
     Dates: start: 20101110, end: 20101121
  3. MYCOPHENOLIC ACID [Suspect]
     Dosage: No Treatment
     Dates: start: 20101122
  4. NEORAL [Suspect]
     Indication: RENAL TRANSPLANT
     Dosage: 500 mg, daily
     Dates: start: 20100821
  5. ROVALCYTE [Concomitant]
     Indication: PROPHYLAXIS
     Dosage: 900 mg, day
     Dates: end: 20101119

REACTIONS (2)
  - Agranulocytosis [Recovered/Resolved]
  - Hyperthermia [None]
